FAERS Safety Report 6166576-1 (Version None)
Quarter: 2009Q2

REPORT INFORMATION
  Report Type: 
  Country: None (occurrence: None)
  Receive Date: 20090422
  Receipt Date: 20090407
  Transmission Date: 20091009
  Serious: Yes (Other)
  Sender: FDA-Public Use
  Company Number: 20090120

PATIENT
  Sex: Female

DRUGS (1)
  1. VENOFER [Suspect]
     Indication: IRON DEFICIENCY
     Dosage: 200 MG, WKLY;
     Dates: start: 20090403, end: 20090403

REACTIONS (2)
  - EXTRAVASATION [None]
  - SKIN DISCOLOURATION [None]
